FAERS Safety Report 8451393-X (Version None)
Quarter: 2012Q2

REPORT INFORMATION
  Report Type: 
  Country: None (occurrence: None)
  Receive Date: 20120620
  Receipt Date: 20120502
  Transmission Date: 20120825
  Serious: No
  Sender: FDA-Public Use
  Company Number: US-VERTEX PHARMACEUTICALS INC.-AE-2012-002858

PATIENT
  Sex: Female
  Weight: 72.64 kg

DRUGS (8)
  1. INCIVEK [Suspect]
     Indication: HEPATITIS C
     Route: 048
     Dates: start: 20120103, end: 20120316
  2. ACCUPRIL [Concomitant]
     Indication: HYPERTENSION
     Route: 048
  3. TIMOLOL MALEATE [Concomitant]
     Indication: GLAUCOMA
  4. PEGASYS [Concomitant]
     Indication: HEPATITIS C
     Route: 058
     Dates: start: 20111003, end: 20120316
  5. RIBASPHERE [Concomitant]
     Indication: HEPATITIS C
     Route: 048
     Dates: start: 20111003, end: 20120316
  6. AMLODIPINE [Concomitant]
     Indication: HYPERTENSION
     Route: 048
  7. PROCRIT [Concomitant]
     Indication: ANAEMIA
  8. XALATAN [Concomitant]
     Indication: GLAUCOMA

REACTIONS (10)
  - VULVOVAGINAL PRURITUS [None]
  - PRURITUS GENERALISED [None]
  - SWELLING FACE [None]
  - ANAEMIA [None]
  - DYSPNOEA [None]
  - DIZZINESS [None]
  - ANAL PRURITUS [None]
  - SYNCOPE [None]
  - PLATELET COUNT DECREASED [None]
  - DRY SKIN [None]
